FAERS Safety Report 8407469-6 (Version None)
Quarter: 2012Q2

REPORT INFORMATION
  Report Type: 
  Country: None (occurrence: None)
  Receive Date: 20120604
  Receipt Date: 20120530
  Transmission Date: 20120825
  Serious: Yes (Hospitalization)
  Sender: FDA-Public Use
  Company Number: ES-PFIZER INC-2012114199

PATIENT
  Age: 66 Year
  Sex: Male

DRUGS (6)
  1. ALDACTONE [Suspect]
     Indication: ASCITES
     Dosage: 200 MG, DAILY
     Route: 048
     Dates: start: 20110429, end: 20110523
  2. LOSARTAN POTASSIUM AND HYDROCHLOROTHIAZIDE [Interacting]
     Indication: HYPERTENSION
     Dosage: 50 MG/12.5 MG
     Route: 048
     Dates: start: 20090701, end: 20110523
  3. ALDACTONE [Interacting]
     Dosage: 100 MG, DAILY
     Route: 048
     Dates: start: 20110228, end: 20110429
  4. PROPRANOLOL HYDROCHLORIDE [Interacting]
     Indication: VARICES OESOPHAGEAL
     Dosage: 40 MG, UNK
     Route: 048
     Dates: start: 20110201
  5. FUROSEMIDE [Interacting]
     Indication: ASCITES
     Dosage: 40 MG, DAILY
     Route: 048
     Dates: start: 20110228, end: 20110523
  6. SIMVASTATIN [Concomitant]
     Indication: HYPERLIPIDAEMIA
     Dosage: 20 MG, DAILY
     Route: 048
     Dates: start: 20090301

REACTIONS (2)
  - DRUG INTERACTION [None]
  - HEPATIC ENCEPHALOPATHY [None]
